FAERS Safety Report 24439673 (Version 1)
Quarter: 2024Q4

REPORT INFORMATION
  Report Type: Spontaneous
  Country: CA (occurrence: CA)
  Receive Date: 20241015
  Receipt Date: 20241015
  Transmission Date: 20250114
  Serious: Yes (Other)
  Sender: ELI LILLY AND COMPANY
  Company Number: CA-ELI_LILLY_AND_COMPANY-CA202410005288

PATIENT
  Age: 47 Year
  Sex: Female

DRUGS (15)
  1. OLUMIANT [Suspect]
     Active Substance: BARICITINIB
     Indication: Product used for unknown indication
     Dosage: UNK UNK, UNKNOWN
     Route: 065
  2. ACTEMRA [Suspect]
     Active Substance: TOCILIZUMAB
     Indication: Product used for unknown indication
     Dosage: UNK UNK, UNKNOWN
     Route: 065
  3. CEPHALEXIN [Suspect]
     Active Substance: CEPHALEXIN
     Indication: Product used for unknown indication
     Dosage: UNK UNK, UNKNOWN
     Route: 065
  4. LEFLUNOMIDE [Suspect]
     Active Substance: LEFLUNOMIDE
     Indication: Product used for unknown indication
     Dosage: UNK UNK, UNKNOWN
     Route: 065
  5. PLAQUENIL [Suspect]
     Active Substance: HYDROXYCHLOROQUINE SULFATE
     Indication: Product used for unknown indication
     Dosage: UNK UNK, UNKNOWN
     Route: 065
  6. SIMPONI [Suspect]
     Active Substance: GOLIMUMAB
     Indication: Product used for unknown indication
     Dosage: UNK UNK, UNKNOWN
     Route: 058
  7. CIPROFLOXACIN [Concomitant]
     Active Substance: CIPROFLOXACIN
     Indication: Product used for unknown indication
  8. METHOTREXATE [Concomitant]
     Active Substance: METHOTREXATE
     Indication: Product used for unknown indication
  9. NAPROXEN [Concomitant]
     Active Substance: NAPROXEN
     Indication: Product used for unknown indication
  10. NOROXIN [Concomitant]
     Active Substance: NORFLOXACIN
     Indication: Product used for unknown indication
  11. ORENCIA [Concomitant]
     Active Substance: ABATACEPT
     Indication: Product used for unknown indication
  12. AZITHROMYCIN [Concomitant]
     Active Substance: AZITHROMYCIN
     Indication: Product used for unknown indication
  13. PYRITINOL HYDROCHLORIDE [Concomitant]
     Active Substance: PYRITINOL HYDROCHLORIDE
     Indication: Product used for unknown indication
  14. SULFAMETHOXAZOLE\TRIMETHOPRIM [Concomitant]
     Active Substance: SULFAMETHOXAZOLE\TRIMETHOPRIM
     Indication: Product used for unknown indication
  15. TINZAPARIN [Concomitant]
     Active Substance: TINZAPARIN
     Indication: Product used for unknown indication

REACTIONS (8)
  - Anaphylactic reaction [Unknown]
  - Blister [Unknown]
  - Pharyngeal swelling [Unknown]
  - Throat tightness [Unknown]
  - Gastrointestinal disorder [Unknown]
  - Drug hypersensitivity [Unknown]
  - Headache [Unknown]
  - Rash [Unknown]
